FAERS Safety Report 18274420 (Version 1)
Quarter: 2020Q3

REPORT INFORMATION
  Report Type: Spontaneous
  Country: CH (occurrence: CH)
  Receive Date: 20200916
  Receipt Date: 20200916
  Transmission Date: 20201103
  Serious: Yes (Hospitalization)
  Sender: FDA-Public Use
  Company Number: CH-009507513-2009CHE004203

PATIENT
  Age: 63 Year
  Sex: Female

DRUGS (10)
  1. NOVORAPID [Concomitant]
     Active Substance: INSULIN ASPART
  2. NEORAL SANDIMMUN [Interacting]
     Active Substance: CYCLOSPORINE
     Dosage: 1 DOSAGE FORM, BID
     Route: 048
  3. PANTOZOL [Concomitant]
     Active Substance: PANTOPRAZOLE SODIUM
  4. STILNOX [Concomitant]
     Active Substance: ZOLPIDEM TARTRATE
  5. RYZODEG 70/30 [Concomitant]
     Active Substance: INSULIN ASPART\INSULIN DEGLUDEC
  6. ZESTRIL [Concomitant]
     Active Substance: LISINOPRIL
  7. JANUMET [Concomitant]
     Active Substance: METFORMIN HYDROCHLORIDE\SITAGLIPTIN PHOSPHATE
  8. CELLCEPT [Concomitant]
     Active Substance: MYCOPHENOLATE MOFETIL\MYCOPHENOLATE MOFETIL HYDROCHLORIDE
  9. INEGY [Suspect]
     Active Substance: EZETIMIBE\SIMVASTATIN
     Dosage: INEGY ON THERAPY FOR SOME TIME AT A LOWER DOSE, INCREASED TO 80 MG/10 MG IN MAY2020
     Route: 048
     Dates: end: 20200827
  10. NEORAL SANDIMMUN [Interacting]
     Active Substance: CYCLOSPORINE
     Dosage: 1 DOSAGE FORM
     Route: 048

REACTIONS (2)
  - Contraindicated product prescribed [Recovered/Resolved]
  - Rhabdomyolysis [Recovering/Resolving]

NARRATIVE: CASE EVENT DATE: 202001
